FAERS Safety Report 12246706 (Version 2)
Quarter: 2016Q2

REPORT INFORMATION
  Report Type: Report from Study
  Country: CA (occurrence: CA)
  Receive Date: 20160407
  Receipt Date: 20160525
  Transmission Date: 20160815
  Serious: Yes (Hospitalization, Other)
  Sender: FDA-Public Use
  Company Number: CA-JNJFOC-20160405157

PATIENT
  Age: 45 Year
  Sex: Male

DRUGS (1)
  1. REMICADE [Suspect]
     Active Substance: INFLIXIMAB
     Indication: CROHN^S DISEASE
     Dosage: 52 WEEKS DURATION (ALSO REPORTED AS 9 YEARS THERAPY DURATION)
     Route: 042
     Dates: start: 200703, end: 201603

REACTIONS (3)
  - Product use issue [Unknown]
  - Off label use [Unknown]
  - Prostatic operation [Unknown]

NARRATIVE: CASE EVENT DATE: 200703
